FAERS Safety Report 8774314 (Version 2)
Quarter: 2012Q4

REPORT INFORMATION
  Report Type: 
  Country: FR (occurrence: FR)
  Receive Date: 20120907
  Receipt Date: 20120928
  Transmission Date: 20130627
  Serious: Yes (Death, Hospitalization)
  Sender: FDA-Public Use
  Company Number: FR-PFIZER INC-2012217036

PATIENT
  Age: 78 Year
  Sex: Male

DRUGS (17)
  1. DALACINE [Suspect]
     Indication: ARTHRITIS BACTERIAL
     Dosage: UNK
     Route: 048
     Dates: start: 20120625
  2. DALACINE [Suspect]
     Dosage: 600 mg, 3x/day
     Route: 048
     Dates: start: 20120625
  3. CEFOTAXIME [Suspect]
     Indication: ARTHRITIS BACTERIAL
     Dosage: 2 g, 3x/day
     Route: 042
     Dates: start: 20120601, end: 20120607
  4. CEFOTAXIME [Suspect]
     Dosage: UNK
     Dates: start: 20120625, end: 20120627
  5. RIFADINE [Suspect]
     Indication: ARTHRITIS BACTERIAL
     Dosage: 600 mg, 2x/day
     Route: 042
     Dates: start: 20120604, end: 20120610
  6. GENTAMICIN [Suspect]
     Indication: ARTHRITIS BACTERIAL
     Dosage: 300 mg, 1x/day
     Route: 042
     Dates: start: 20120601, end: 20120604
  7. TAVANIC [Suspect]
     Indication: ARTHRITIS BACTERIAL
     Dosage: 250 mg, 2x/day
     Route: 042
     Dates: start: 20120607, end: 20120608
  8. TAVANIC [Suspect]
     Indication: ARTHRITIS BACTERIAL
     Dosage: 250 mg, 2x/day
     Route: 048
     Dates: start: 20120610, end: 20120629
  9. PIPERACILLINTAZOBACTAM [Suspect]
     Indication: ARTHRITIS BACTERIAL
     Dosage: 8 g, 1x/day
     Route: 042
     Dates: start: 20120629
  10. COVERSYL [Concomitant]
  11. KALEORID [Concomitant]
  12. TEMERIT [Concomitant]
  13. LASILIX [Concomitant]
  14. PARIET [Concomitant]
  15. TARDYFERON [Concomitant]
  16. PRAXILENE [Concomitant]
  17. PREVISCAN [Concomitant]

REACTIONS (4)
  - Renal failure acute [Fatal]
  - Tubulointerstitial nephritis [Fatal]
  - Hyperkalaemia [Fatal]
  - Oliguria [Fatal]
